FAERS Safety Report 8052150-9 (Version None)
Quarter: 2012Q1

REPORT INFORMATION
  Report Type: 
  Country: None (occurrence: None)
  Receive Date: 20120118
  Receipt Date: 20120112
  Transmission Date: 20120608
  Serious: No
  Sender: FDA-Public Use
  Company Number: US-PFIZER INC-2012010117

PATIENT
  Sex: Female
  Weight: 73.469 kg

DRUGS (6)
  1. LYRICA [Suspect]
     Indication: NEUROPATHY PERIPHERAL
     Dosage: 300 MG, 3X/DAY
     Route: 048
     Dates: start: 20110101
  2. KLONOPIN [Concomitant]
     Dosage: 2 MG, 2X/DAY
  3. FLEXERIL [Concomitant]
     Dosage: UNK
  4. LYRICA [Suspect]
     Indication: NEURALGIA
  5. LYRICA [Suspect]
     Indication: FIBROMYALGIA
  6. LEXAPRO [Concomitant]
     Dosage: 20 MG, 1X/DAY

REACTIONS (4)
  - DRUG INEFFECTIVE [None]
  - WEIGHT INCREASED [None]
  - NEURALGIA [None]
  - PARAESTHESIA [None]
